FAERS Safety Report 7537047-2 (Version None)
Quarter: 2011Q2

REPORT INFORMATION
  Report Type: 
  Country: None (occurrence: None)
  Receive Date: 20110609
  Receipt Date: 20110527
  Transmission Date: 20111010
  Serious: Yes (Hospitalization, Other)
  Sender: FDA-Public Use
  Company Number: PHEH2010US03473

PATIENT
  Sex: Female

DRUGS (32)
  1. ANTIBIOTICS [Concomitant]
  2. PREMARIN [Concomitant]
  3. VERAPAMIL [Concomitant]
  4. AMLODIPINE [Concomitant]
  5. ZELNORM [Suspect]
     Indication: IRRITABLE BOWEL SYNDROME
  6. ZELNORM [Suspect]
     Indication: GASTRIC DISORDER
  7. TIAZAC [Concomitant]
  8. CELEBREX [Concomitant]
  9. NEURONTIN [Concomitant]
  10. GLUCOPHAGE [Concomitant]
  11. ASMANEX TWISTHALER [Concomitant]
  12. NEXIUM [Concomitant]
  13. LYRICA [Concomitant]
  14. LIPITOR [Concomitant]
  15. METAMUCIL-2 [Concomitant]
  16. SKELAXIN [Concomitant]
  17. PRILOSEC [Concomitant]
  18. ESTRATEST [Concomitant]
  19. RISPERDAL [Concomitant]
  20. TRAZODONE HCL [Concomitant]
  21. REGLAN [Concomitant]
  22. MAGNESIUM OXIDE [Concomitant]
  23. CLARITIN [Concomitant]
  24. SINGULAIR [Concomitant]
  25. ASPIRIN [Concomitant]
  26. UNIVASC [Concomitant]
  27. LIPITOR [Concomitant]
  28. TRAMADOL HCL [Concomitant]
  29. DIOVAN HCT [Concomitant]
  30. MOBIC [Concomitant]
  31. PROZAC [Concomitant]
  32. FLONASE [Concomitant]

REACTIONS (5)
  - POLYURIA [None]
  - INJURY [None]
  - CHEST PAIN [None]
  - CARDIAC DISORDER [None]
  - OEDEMA [None]
